FAERS Safety Report 5227991-3 (Version None)
Quarter: 2007Q1

REPORT INFORMATION
  Report Type: 
  Country: None (occurrence: None)
  Receive Date: 20061205
  Receipt Date: 20061003
  Transmission Date: 20070707
  Serious: No
  Sender: FDA-Public Use
  Company Number: PHEH2006US11560

PATIENT
  Age: 40 Year
  Sex: Male

DRUGS (3)
  1. EXJADE [Suspect]
     Indication: IRON OVERLOAD
     Dosage: 500 MG, QD, ORAL
     Route: 048
     Dates: start: 20060810, end: 20060901
  2. OXYCONTIN [Concomitant]
  3. HYDROCODONE (HYDROCODONE) [Concomitant]

REACTIONS (2)
  - BONE PAIN [None]
  - DIARRHOEA [None]
